FAERS Safety Report 4878268-7 (Version None)
Quarter: 2006Q1

REPORT INFORMATION
  Report Type: 
  Country: None (occurrence: None)
  Receive Date: 20060111
  Receipt Date: 20060106
  Transmission Date: 20060701
  Serious: Yes (Other)
  Sender: FDA-Public Use
  Company Number: US-MERCK-0601USA00645

PATIENT
  Age: 58 Year
  Sex: Male

DRUGS (4)
  1. CRIXIVAN [Suspect]
     Indication: HIV INFECTION
     Route: 048
     Dates: start: 19970208, end: 19970601
  2. LAMIVUDINE [Suspect]
     Indication: HIV INFECTION
     Route: 065
     Dates: start: 19970208
  3. NELFINAVIR MESYLATE [Suspect]
     Indication: HIV INFECTION
     Route: 065
     Dates: start: 19970601
  4. STAVUDINE [Suspect]
     Indication: HIV INFECTION
     Route: 065
     Dates: start: 19970208

REACTIONS (3)
  - BACK PAIN [None]
  - FLANK PAIN [None]
  - OSTEONECROSIS [None]
